FAERS Safety Report 11165584 (Version 1)
Quarter: 2015Q2

REPORT INFORMATION
  Report Type: Spontaneous
  Country: DE (occurrence: DE)
  Receive Date: 20150604
  Receipt Date: 20150604
  Transmission Date: 20150821
  Serious: Yes (Other)
  Sender: FDA-Public Use
  Company Number: DE-PFIZER INC-2015101949

PATIENT
  Age: 25 Year
  Sex: Female

DRUGS (5)
  1. PHENOBARBITAL. [Concomitant]
     Active Substance: PHENOBARBITAL
  2. PHENYTOIN. [Suspect]
     Active Substance: PHENYTOIN
     Indication: SEIZURE
     Dosage: 0.4 G, DAILY
  3. PRIMIDONE. [Concomitant]
     Active Substance: PRIMIDONE
  4. PHENYTOIN. [Suspect]
     Active Substance: PHENYTOIN
     Dosage: 0.5 G, DAILY
  5. PHENYTOIN. [Suspect]
     Active Substance: PHENYTOIN
     Dosage: 0.6 G, DAILY

REACTIONS (3)
  - Prescribed overdose [Unknown]
  - Toxicity to various agents [Unknown]
  - Cerebellar atrophy [Unknown]
